FAERS Safety Report 11281624 (Version 1)
Quarter: 2015Q3

REPORT INFORMATION
  Report Type: Spontaneous
  Country: JP (occurrence: JP)
  Receive Date: 20150717
  Receipt Date: 20150717
  Transmission Date: 20151125
  Serious: Yes (Hospitalization)
  Sender: FDA-Public Use
  Company Number: JP-PFIZER INC-2015236240

PATIENT
  Age: 58 Year
  Sex: Male

DRUGS (1)
  1. HYDROCORTISONE. [Suspect]
     Active Substance: HYDROCORTISONE
     Indication: ADRENOCORTICOTROPIC HORMONE DEFICIENCY
     Dosage: 10 MG, DAILY

REACTIONS (1)
  - Mania [Recovered/Resolved]
